FAERS Safety Report 5602479-6 (Version None)
Quarter: 2008Q1

REPORT INFORMATION
  Report Type: 
  Country: None (occurrence: None)
  Receive Date: 20080125
  Receipt Date: 20080115
  Transmission Date: 20080703
  Serious: Yes (Hospitalization, Other)
  Sender: FDA-Public Use
  Company Number: US-ASTRAZENECA-2006UW27638

PATIENT
  Age: 14353 Day
  Sex: Female
  Weight: 100 kg

DRUGS (16)
  1. SEROQUEL [Suspect]
     Indication: DEPRESSION
     Dosage: 150 MG, 200 MG, 3 TIMES PER DAY
     Route: 048
     Dates: start: 19990101, end: 20070301
  2. ABILIFY [Concomitant]
     Route: 048
     Dates: start: 20060301
  3. GEODON [Concomitant]
     Dosage: 60 MG - 80 MG
     Dates: start: 20010531, end: 20050301
  4. RISPERDAL [Concomitant]
     Dosage: 2 MG - 4 MG
     Dates: start: 20050301
  5. THORAZINE [Concomitant]
     Route: 048
     Dates: start: 19991201, end: 20020601
  6. ZYPREXA [Concomitant]
     Dates: start: 19990723
  7. ZOLOFT [Concomitant]
     Route: 048
     Dates: start: 19990723, end: 19991221
  8. LEXAPRO [Concomitant]
     Route: 048
     Dates: start: 20050204, end: 20060101
  9. WELLBUTRIN SR [Concomitant]
     Route: 048
     Dates: start: 19990723
  10. TRAZODONE HCL [Concomitant]
     Route: 048
     Dates: start: 19990723
  11. DEPAKOTE [Concomitant]
     Route: 048
     Dates: start: 19990903
  12. REMERON [Concomitant]
     Route: 048
     Dates: start: 19990901
  13. RESTORIL [Concomitant]
     Route: 048
     Dates: start: 20000502
  14. MELLARIL [Concomitant]
     Route: 048
     Dates: start: 20001003
  15. AMBIEN [Concomitant]
     Route: 048
     Dates: start: 20011016
  16. CYMBALTA [Concomitant]
     Dates: start: 20041129

REACTIONS (11)
  - ARTHROPATHY [None]
  - BLOOD CHOLESTEROL INCREASED [None]
  - DIABETES MELLITUS INADEQUATE CONTROL [None]
  - MAJOR DEPRESSION [None]
  - MENORRHAGIA [None]
  - NEUROPATHY PERIPHERAL [None]
  - OBESITY [None]
  - PAIN IN EXTREMITY [None]
  - TYPE 2 DIABETES MELLITUS [None]
  - UTERINE LEIOMYOMA [None]
  - WEIGHT INCREASED [None]
